FAERS Safety Report 9444088 (Version 1)
Quarter: 2013Q3

REPORT INFORMATION
  Report Type: Spontaneous
  Country: US (occurrence: None)
  Receive Date: 20130806
  Receipt Date: 20130806
  Transmission Date: 20140515
  Serious: Yes (Hospitalization)
  Sender: FDA-Public Use
  Company Number: None

PATIENT
  Age: 29 Year
  Sex: Female
  Weight: 61.75 kg

DRUGS (3)
  1. ORTHO MICRONOR [Suspect]
     Indication: PREGNANCY
     Dosage: 1 PILL
     Route: 048
     Dates: start: 200901, end: 20130404
  2. MONENESSA [Concomitant]
  3. CLONIDINE [Concomitant]

REACTIONS (3)
  - Menorrhagia [None]
  - Thrombosis [None]
  - Dysfunctional uterine bleeding [None]
